FAERS Safety Report 22331245 (Version 1)
Quarter: 2023Q2

REPORT INFORMATION
  Report Type: Spontaneous
  Country: US (occurrence: US)
  Receive Date: 20230517
  Receipt Date: 20230517
  Transmission Date: 20230722
  Serious: Yes (Other)
  Sender: FDA-Public Use
  Company Number: US-009507513-2305USA004115

PATIENT
  Age: 78 Year
  Sex: Male
  Weight: 76.5 kg

DRUGS (2)
  1. BRIDION [Suspect]
     Active Substance: SUGAMMADEX
     Indication: Neuromuscular blockade reversal
     Dosage: DOSE: 0.5 MG/KG FOLLOWED BY 1.5 MG/KG KG TO ACHIEVE A TOTAL DOSE OF 2 MG/KG TO REVERSE MODERATE NMB
  2. ROCURONIUM BROMIDE [Suspect]
     Active Substance: ROCURONIUM BROMIDE
     Indication: Neuromuscular blockade
     Dosage: 50 MILLIGRAMS

REACTIONS (5)
  - Bradycardia [Unknown]
  - Tachycardia [Unknown]
  - Atrioventricular block [Unknown]
  - Incorrect dose administered [Unknown]
  - Wrong technique in product usage process [Unknown]
